FAERS Safety Report 5458649-3 (Version None)
Quarter: 2007Q3

REPORT INFORMATION
  Report Type: 
  Country: None (occurrence: None)
  Receive Date: 20070919
  Receipt Date: 20070420
  Transmission Date: 20080115
  Serious: Yes (Hospitalization, Other)
  Sender: FDA-Public Use
  Company Number: US-ASTRAZENECA-2007UW07834

PATIENT
  Age: 43 Year
  Sex: Female
  Weight: 98.6 kg

DRUGS (2)
  1. SEROQUEL [Suspect]
     Indication: DEPRESSION
     Dosage: 50 MG, 100 MG
     Route: 048
     Dates: start: 20010101
  2. SEROQUEL [Suspect]
     Indication: ANXIETY
     Dosage: 50 MG, 100 MG
     Route: 048
     Dates: start: 20010101

REACTIONS (2)
  - DIABETES MELLITUS [None]
  - DIABETIC KETOACIDOSIS [None]
